FAERS Safety Report 6702178-3 (Version None)
Quarter: 2010Q2

REPORT INFORMATION
  Report Type: 
  Country: None (occurrence: None)
  Receive Date: 20100429
  Receipt Date: 20100420
  Transmission Date: 20101027
  Serious: Yes (Other)
  Sender: FDA-Public Use
  Company Number: US-JNJCH-2010009775

PATIENT
  Age: 56 Year
  Sex: Male
  Weight: 95.3 kg

DRUGS (3)
  1. COOL MINT LISTERINE POCKETMIST [Suspect]
     Indication: BREATH ODOUR
     Dosage: TEXT:TWO ^SQUIRTS^ EVERY 2-3 HOURS
     Route: 048
  2. LISINOPRIL [Concomitant]
     Indication: BLOOD PRESSURE
     Route: 065
  3. NORVASC [Concomitant]
     Indication: BLOOD PRESSURE
     Route: 065

REACTIONS (2)
  - BLOOD PRESSURE DIASTOLIC INCREASED [None]
  - PRODUCT QUALITY ISSUE [None]
